FAERS Safety Report 19221486 (Version 1)
Quarter: 2021Q2

REPORT INFORMATION
  Report Type: Spontaneous
  Country: AU (occurrence: AU)
  Receive Date: 20210505
  Receipt Date: 20210505
  Transmission Date: 20210717
  Serious: Yes (Death)
  Sender: FDA-Public Use
  Company Number: None

PATIENT
  Age: 65 Year
  Sex: Male
  Weight: 120 kg

DRUGS (5)
  1. DOPAMINE [Concomitant]
     Active Substance: DOPAMINE HYDROCHLORIDE
  2. MEROPENUM [Concomitant]
     Active Substance: MEROPENEM
  3. VEKLURY [Suspect]
     Active Substance: REMDESIVIR
     Indication: SUSPECTED COVID-19
     Dosage: ?          QUANTITY:1 INJECTION(S);?
     Route: 042
  4. LADININ [Concomitant]
     Active Substance: CIPROFLOXACIN HYDROCHLORIDE
  5. DEXAMETHASONE. [Concomitant]
     Active Substance: DEXAMETHASONE

REACTIONS (3)
  - Seizure [None]
  - Cardiac arrest [None]
  - Renal failure [None]

NARRATIVE: CASE EVENT DATE: 20210205
